FAERS Safety Report 21375227 (Version 1)
Quarter: 2022Q3

REPORT INFORMATION
  Report Type: Report from Study
  Country: CA (occurrence: CA)
  Receive Date: 20220926
  Receipt Date: 20220926
  Transmission Date: 20221026
  Serious: Yes (Other)
  Sender: FDA-Public Use
  Company Number: CA-JNJFOC-20220939798

PATIENT
  Age: 77 Year
  Sex: Female

DRUGS (18)
  1. SELEXIPAG [Suspect]
     Active Substance: SELEXIPAG
     Indication: Pulmonary hypertension
     Dosage: 400 MCG THEN REDUCED TO 200 MCG
     Route: 048
     Dates: start: 20220905
  2. BUPRENORPHINE\NALOXONE [Concomitant]
     Active Substance: BUPRENORPHINE\NALOXONE
  3. SENNOSIDES [Concomitant]
     Active Substance: SENNOSIDES
  4. ACETAMINOPHEN [Concomitant]
     Active Substance: ACETAMINOPHEN
  5. LASIX [Concomitant]
     Active Substance: FUROSEMIDE
  6. OXYGEN [Concomitant]
     Active Substance: OXYGEN
  7. VITAMIN C [Concomitant]
     Active Substance: ASCORBIC ACID
     Dosage: OD
  8. GABAPENTIN [Concomitant]
     Active Substance: GABAPENTIN
     Dosage: TWICE DAILY
  9. OXYCODONE [Concomitant]
     Active Substance: OXYCODONE
  10. POTASSIUM CHLORIDE [Concomitant]
     Active Substance: POTASSIUM CHLORIDE
  11. CALCIUM CARBONATE [Concomitant]
     Active Substance: CALCIUM CARBONATE
  12. VITAMIN D3 [Concomitant]
     Active Substance: CHOLECALCIFEROL
  13. TADALAFIL [Concomitant]
     Active Substance: TADALAFIL
  14. RABEPRAZOLE [Concomitant]
     Active Substance: RABEPRAZOLE
  15. AMBRISENTAN [Concomitant]
     Active Substance: AMBRISENTAN
  16. ADCIRCA [Concomitant]
     Active Substance: TADALAFIL
  17. ASPIRIN [Concomitant]
     Active Substance: ASPIRIN
  18. VITAMIN E [Concomitant]
     Active Substance: .ALPHA.-TOCOPHEROL

REACTIONS (4)
  - Dyspnoea [Unknown]
  - Asthenia [Unknown]
  - Malaise [Unknown]
  - Crying [Unknown]

NARRATIVE: CASE EVENT DATE: 20220901
